FAERS Safety Report 11596870 (Version 2)
Quarter: 2015Q4

REPORT INFORMATION
  Report Type: Spontaneous
  Country: US (occurrence: None)
  Receive Date: 20151005
  Receipt Date: 20151005
  Transmission Date: 20160304
  Serious: No
  Sender: FDA-Public Use
  Company Number: None

PATIENT
  Age: 26 Year
  Sex: Female
  Weight: 62.6 kg

DRUGS (8)
  1. TRAZODONE [Suspect]
     Active Substance: TRAZODONE HYDROCHLORIDE
     Indication: INSOMNIA
     Dosage: 1 PILL AT BEDTIME
     Route: 048
     Dates: start: 20150928
  2. IBUPROFEN. [Concomitant]
     Active Substance: IBUPROFEN
  3. WELLBUTRIN [Concomitant]
     Active Substance: BUPROPION HYDROCHLORIDE
  4. LYRICA [Concomitant]
     Active Substance: PREGABALIN
  5. BUSPAR [Concomitant]
     Active Substance: BUSPIRONE HYDROCHLORIDE
  6. LEXAPRO [Concomitant]
     Active Substance: ESCITALOPRAM OXALATE
  7. YASMIN [Concomitant]
     Active Substance: DROSPIRENONE\ETHINYL ESTRADIOL
  8. ABILIFY [Suspect]
     Active Substance: ARIPIPRAZOLE
     Indication: DEPRESSION
     Dosage: 1 PILL ONCE DAILY
     Route: 048
     Dates: start: 20150918

REACTIONS (17)
  - Dyskinesia [None]
  - Insomnia [None]
  - Muscular weakness [None]
  - Paraesthesia [None]
  - Muscle twitching [None]
  - Dizziness [None]
  - Oropharyngeal pain [None]
  - Muscle spasms [None]
  - Sunburn [None]
  - Hyperhidrosis [None]
  - Balance disorder [None]
  - Increased appetite [None]
  - Weight increased [None]
  - Dermatitis allergic [None]
  - Headache [None]
  - Vision blurred [None]
  - Miosis [None]

NARRATIVE: CASE EVENT DATE: 20151003
